FAERS Safety Report 10827368 (Version 1)
Quarter: 2015Q1

REPORT INFORMATION
  Report Type: Spontaneous
  Country: US (occurrence: US)
  Receive Date: 20150219
  Receipt Date: 20150219
  Transmission Date: 20150721
  Serious: Yes (Other)
  Sender: FDA-Public Use
  Company Number: US-GILEAD-2015-0137289

PATIENT
  Age: 65 Year
  Sex: Female

DRUGS (2)
  1. LETAIRIS [Suspect]
     Active Substance: AMBRISENTAN
     Indication: ATRIAL SEPTAL DEFECT
     Dosage: 5 MG, QD
     Route: 065
     Dates: start: 20140415
  2. LETAIRIS [Suspect]
     Active Substance: AMBRISENTAN
     Indication: PULMONARY HYPERTENSION

REACTIONS (2)
  - Decreased appetite [Not Recovered/Not Resolved]
  - Abdominal mass [Not Recovered/Not Resolved]

NARRATIVE: CASE EVENT DATE: 20141001
